FAERS Safety Report 21706308 (Version 1)
Quarter: 2022Q4

REPORT INFORMATION
  Report Type: Report from Study
  Country: JP (occurrence: JP)
  Receive Date: 20221209
  Receipt Date: 20221209
  Transmission Date: 20230113
  Serious: Yes (Other)
  Sender: FDA-Public Use
  Company Number: JP-SUN PHARMACEUTICAL INDUSTRIES LTD-2022RR-366022

PATIENT
  Age: 82 Year
  Sex: Male

DRUGS (2)
  1. GEMCITABINE [Suspect]
     Active Substance: GEMCITABINE
     Indication: Squamous cell carcinoma
     Dosage: 800 MILLIGRAM/SQ. METER ON DAY1 AND 8
     Route: 065
  2. NEDAPLATIN [Suspect]
     Active Substance: NEDAPLATIN
     Indication: Squamous cell carcinoma
     Dosage: 60 MILLIGRAM/SQ. METER ON DAY 1
     Route: 065

REACTIONS (3)
  - Thrombocytopenia [Unknown]
  - Neutropenia [Unknown]
  - Disease progression [Unknown]
